FAERS Safety Report 10449401 (Version 2)
Quarter: 2015Q2

REPORT INFORMATION
  Report Type: Other
  Country: GB (occurrence: GB)
  Receive Date: 20140912
  Receipt Date: 20150609
  Transmission Date: 20150821
  Serious: Yes (Other)
  Sender: FDA-Public Use
  Company Number: GB-TARO PHARMACEUTICALS U.S.A., INC-2014SUN02072

PATIENT
  Age: 63 Year
  Sex: Female

DRUGS (17)
  1. PARACETAMOL [Concomitant]
     Active Substance: ACETAMINOPHEN
  2. LANREOTIDE [Interacting]
     Active Substance: LANREOTIDE
     Indication: PRODUCT USED FOR UNKNOWN INDICATION
     Dosage: WEEKLY
     Route: 058
     Dates: start: 20140501
  3. GLICLAZIDE [Concomitant]
     Active Substance: GLICLAZIDE
     Dosage: NEWLY STARTED
  4. WARFARIN [Interacting]
     Active Substance: WARFARIN
     Dosage: 5MG DAILY
     Route: 048
  5. WARFARIN [Interacting]
     Active Substance: WARFARIN
     Dosage: 5MG/D BUT 4MG TWICE A WEEK (4.75MG DAILY)
     Route: 048
  6. WARFARIN [Interacting]
     Active Substance: WARFARIN
     Dosage: 4MG/D BUT 5MG TWICE A WEEK (4.25MG DAILY)
     Route: 048
  7. WARFARIN [Interacting]
     Active Substance: WARFARIN
     Dosage: 6 MG, QD
     Route: 048
  8. TERBUTALINE [Concomitant]
     Active Substance: TERBUTALINE
     Route: 055
  9. WARFARIN [Interacting]
     Active Substance: WARFARIN
     Dosage: 4.5MG DAILY
  10. BENDROFLUMETHIAZIDE [Concomitant]
     Active Substance: BENDROFLUMETHIAZIDE
     Dosage: ON AT TIME OF STARTING LANREOTIDE BUT NOW STOPPED
  11. FUROSEMIDE. [Concomitant]
     Active Substance: FUROSEMIDE
  12. SPIRONOLACTONE. [Concomitant]
     Active Substance: SPIRONOLACTONE
  13. RANITIDINE [Concomitant]
     Active Substance: RANITIDINE\RANITIDINE HYDROCHLORIDE
     Dosage: NOW STOPPED
  14. WARFARIN [Suspect]
     Active Substance: WARFARIN
     Indication: ATRIAL FIBRILLATION
     Dosage: 6 MG, QD
     Route: 048
  15. RAMIPRIL. [Concomitant]
     Active Substance: RAMIPRIL
     Dosage: NOW STOPPED
  16. METFORMIN [Concomitant]
     Active Substance: METFORMIN HYDROCHLORIDE
  17. CARBOCISTEINE [Concomitant]
     Active Substance: CARBOCYSTEINE
     Dosage: ON AT TIME OF STARTING LANREOTIDE BUT NOW STOPPED.

REACTIONS (2)
  - International normalised ratio increased [Recovered/Resolved]
  - Drug interaction [Unknown]

NARRATIVE: CASE EVENT DATE: 201405
